FAERS Safety Report 10262629 (Version 1)
Quarter: 2014Q2

REPORT INFORMATION
  Report Type: Report from Study
  Country: BR (occurrence: BR)
  Receive Date: 20140626
  Receipt Date: 20140626
  Transmission Date: 20141212
  Serious: Yes (Other)
  Sender: FDA-Public Use
  Company Number: BR-ABBVIE-14P-020-1250074-00

PATIENT
  Age: 36 Year
  Sex: Female
  Weight: 53 kg

DRUGS (1)
  1. HUMIRA [Suspect]
     Indication: ANKYLOSING SPONDYLITIS
     Route: 058
     Dates: start: 201201, end: 201306

REACTIONS (6)
  - Head injury [Recovering/Resolving]
  - Neck injury [Recovering/Resolving]
  - Joint injury [Recovering/Resolving]
  - Injury corneal [Recovering/Resolving]
  - Pain [Unknown]
  - Physical assault [Unknown]
